FAERS Safety Report 11523590 (Version 1)
Quarter: 2015Q3

REPORT INFORMATION
  Report Type: Spontaneous
  Country: US (occurrence: US)
  Receive Date: 20150918
  Receipt Date: 20150918
  Transmission Date: 20151125
  Serious: No
  Sender: FDA-Public Use
  Company Number: US-ROCHE-706982

PATIENT
  Sex: Female
  Weight: 90.5 kg

DRUGS (6)
  1. PEGASYS [Suspect]
     Active Substance: PEGINTERFERON ALFA-2A
     Indication: HEPATITIS C
     Route: 058
     Dates: start: 2008, end: 2008
  2. VALIUM [Concomitant]
     Active Substance: DIAZEPAM
     Route: 065
  3. COPEGUS [Suspect]
     Active Substance: RIBAVIRIN
     Route: 048
  4. PEGASYS [Suspect]
     Active Substance: PEGINTERFERON ALFA-2A
     Dosage: FORM: PRE-FILLED SYRINGE
     Route: 058
  5. COPEGUS [Suspect]
     Active Substance: RIBAVIRIN
     Indication: HEPATITIS C
     Dosage: FORM: PILLS
     Route: 048
     Dates: start: 2008, end: 2008
  6. VICODIN [Concomitant]
     Active Substance: ACETAMINOPHEN\HYDROCODONE BITARTRATE
     Route: 065

REACTIONS (13)
  - Alopecia [Unknown]
  - Weight decreased [Unknown]
  - Apathy [Unknown]
  - Diarrhoea [Unknown]
  - Malaise [Recovered/Resolved]
  - Amnesia [Unknown]
  - Cough [Unknown]
  - Fatigue [Unknown]
  - Hepatitis C [Recovering/Resolving]
  - Depression [Unknown]
  - Fatigue [Not Recovered/Not Resolved]
  - Influenza like illness [Unknown]
  - Malaise [Not Recovered/Not Resolved]
